FAERS Safety Report 8924321 (Version 2)
Quarter: 2012Q4

REPORT INFORMATION
  Report Type: 
  Country: RU (occurrence: RU)
  Receive Date: 20121126
  Receipt Date: 20121207
  Transmission Date: 20130627
  Serious: Yes (Life-Threatening, Hospitalization, Other)
  Sender: FDA-Public Use
  Company Number: RU-VIIV HEALTHCARE LIMITED-B0846130A

PATIENT
  Age: 32 Year
  Sex: Female
  Weight: 53 kg

DRUGS (4)
  1. KIVEXA [Suspect]
     Indication: HIV INFECTION
     Dosage: 1TAB Per day
     Route: 048
     Dates: start: 20121024, end: 20121031
  2. REYATAZ [Suspect]
     Indication: HIV INFECTION
     Dosage: 400MG Per day
     Route: 048
     Dates: start: 20121024, end: 20121031
  3. NSAID [Concomitant]
  4. UNKNOWN MEDICATION [Concomitant]
     Route: 042

REACTIONS (22)
  - Nephropathy [Recovered/Resolved]
  - Nausea [Unknown]
  - Vomiting [Unknown]
  - Asthenia [Unknown]
  - Body temperature increased [Unknown]
  - Pruritus [Unknown]
  - Lymphadenopathy [Unknown]
  - Pyrexia [Unknown]
  - Confusional state [Unknown]
  - Blood bilirubin increased [Unknown]
  - Bilirubin conjugated increased [Unknown]
  - Alanine aminotransferase increased [Unknown]
  - Aspartate aminotransferase increased [Unknown]
  - Blood alkaline phosphatase increased [Unknown]
  - Blood glucose increased [Unknown]
  - Blood creatinine increased [Unknown]
  - Blood albumin decreased [Unknown]
  - Gallbladder disorder [Unknown]
  - Electrophoresis protein abnormal [Unknown]
  - Liver disorder [Unknown]
  - Pancreatic disorder [Unknown]
  - Renal disorder [Unknown]
